APPROVED DRUG PRODUCT: ROSUVASTATIN CALCIUM
Active Ingredient: ROSUVASTATIN CALCIUM
Strength: EQ 40MG BASE
Dosage Form/Route: TABLET;ORAL
Application: A206603 | Product #004
Applicant: MANKIND PHARMA LTD
Approved: May 16, 2025 | RLD: No | RS: No | Type: DISCN